FAERS Safety Report 11383419 (Version 1)
Quarter: 2015Q3

REPORT INFORMATION
  Report Type: Spontaneous
  Country: US (occurrence: US)
  Receive Date: 20150814
  Receipt Date: 20150814
  Transmission Date: 20151125
  Serious: No
  Sender: FDA-Public Use
  Company Number: US-BAXALTA-2015BLT000995

PATIENT
  Sex: Female

DRUGS (1)
  1. HYQVIA [Suspect]
     Active Substance: HUMAN IMMUNOGLOBULIN G\HYALURONIDASE RECOMBINANT HUMAN
     Indication: PRODUCT USED FOR UNKNOWN INDICATION
     Dosage: 60 ML, UNK
     Dates: start: 20150805

REACTIONS (4)
  - Infusion site pain [Unknown]
  - Infusion site swelling [Unknown]
  - Gravitational oedema [Unknown]
  - Rash [Unknown]

NARRATIVE: CASE EVENT DATE: 201508
